FAERS Safety Report 6865587-8 (Version None)
Quarter: 2010Q3

REPORT INFORMATION
  Report Type: 
  Country: None (occurrence: None)
  Receive Date: 20100721
  Receipt Date: 20080422
  Transmission Date: 20110219
  Serious: No
  Sender: FDA-Public Use
  Company Number: US-PFIZER INC-2008037605

PATIENT
  Sex: Female
  Weight: 63.1 kg

DRUGS (3)
  1. CHANTIX [Suspect]
     Indication: SMOKING CESSATION THERAPY
     Dates: start: 20080417
  2. NORETHISTERONE [Suspect]
     Indication: CONTRACEPTION
     Dates: start: 20080401
  3. ORAL CONTRACEPTIVE NOS [Concomitant]
     Dates: end: 20080401

REACTIONS (4)
  - DYSKINESIA [None]
  - ILL-DEFINED DISORDER [None]
  - INSOMNIA [None]
  - PRURITUS [None]
